FAERS Safety Report 9624746 (Version 1)
Quarter: 2013Q4

REPORT INFORMATION
  Report Type: Spontaneous
  Country: US (occurrence: US)
  Receive Date: 20131015
  Receipt Date: 20131015
  Transmission Date: 20140711
  Serious: Yes (Other)
  Sender: FDA-Public Use
  Company Number: US-JNJFOC-20131007241

PATIENT
  Age: 74 Year
  Sex: Male

DRUGS (4)
  1. PARACETAMOL [Suspect]
     Indication: MUSCULOSKELETAL PAIN
     Route: 065
  2. PARACETAMOL [Suspect]
     Indication: MUSCULOSKELETAL PAIN
     Route: 065
  3. PARACETAMOL [Suspect]
     Indication: MUSCULOSKELETAL PAIN
     Dosage: LESS THAN 2 G/WEEK
     Route: 065
  4. WARFARIN [Interacting]
     Indication: PRODUCT USED FOR UNKNOWN INDICATION
     Route: 065

REACTIONS (2)
  - Drug interaction [Recovered/Resolved]
  - International normalised ratio increased [Recovered/Resolved]
